FAERS Safety Report 4847259-4 (Version None)
Quarter: 2005Q4

REPORT INFORMATION
  Report Type: 
  Country: None (occurrence: None)
  Receive Date: 20051207
  Receipt Date: 20051201
  Transmission Date: 20060501
  Serious: Yes (Other)
  Sender: FDA-Public Use
  Company Number: GXKR2004BR00655

PATIENT
  Age: 25 Year
  Sex: Female
  Weight: 65 kg

DRUGS (3)
  1. AMOXICILLIN AND CLAVULANATE POTASSIUM [Suspect]
     Indication: PNEUMONIA
     Dosage: 500MG SEE DOSAGE TEXT
     Route: 048
     Dates: start: 20041001
  2. RANITIDINE [Concomitant]
  3. ALUMINUM HYDROXIDE GEL [Concomitant]

REACTIONS (9)
  - CONDITION AGGRAVATED [None]
  - DIARRHOEA [None]
  - DIZZINESS [None]
  - EATING DISORDER [None]
  - HEADACHE [None]
  - HYPERTENSION [None]
  - NAUSEA [None]
  - PNEUMONIA [None]
  - SYNCOPE [None]
